FAERS Safety Report 8564760-0 (Version None)
Quarter: 2012Q3

REPORT INFORMATION
  Report Type: 
  Country: None (occurrence: None)
  Receive Date: 20120803
  Receipt Date: 20120727
  Transmission Date: 20120928
  Serious: Yes (Other)
  Sender: FDA-Public Use
  Company Number: US-UCBSA-062816

PATIENT
  Age: 62 Year
  Sex: Female

DRUGS (1)
  1. CIMZIA [Suspect]
     Indication: RHEUMATOID ARTHRITIS
     Dosage: APPROXIMATELY ONE YEAR
     Dates: end: 20120101

REACTIONS (2)
  - HERPES ZOSTER [None]
  - INFLUENZA LIKE ILLNESS [None]
